FAERS Safety Report 6054501-3 (Version None)
Quarter: 2009Q1

REPORT INFORMATION
  Report Type: 
  Country: None (occurrence: None)
  Receive Date: 20090127
  Receipt Date: 20090114
  Transmission Date: 20090719
  Serious: Yes (Hospitalization)
  Sender: FDA-Public Use
  Company Number: PHHY2009FR01977

PATIENT
  Sex: Female

DRUGS (3)
  1. ESIDRIX [Suspect]
     Dosage: UNK
     Route: 048
     Dates: start: 20080801, end: 20081028
  2. DILTIAZEM HCL [Concomitant]
     Indication: HYPERTENSION
     Dosage: UNK
     Dates: start: 20070101, end: 20081028
  3. IRBESARTAN [Concomitant]
     Dosage: UNK
     Dates: start: 20070101, end: 20080701

REACTIONS (5)
  - COUGH [None]
  - HYSTERECTOMY [None]
  - INTERSTITIAL LUNG DISEASE [None]
  - NODULE [None]
  - PULMONARY EMBOLISM [None]
